FAERS Safety Report 18332563 (Version 4)
Quarter: 2020Q4

REPORT INFORMATION
  Report Type: Spontaneous
  Country: US (occurrence: US)
  Receive Date: 20200930
  Receipt Date: 20201119
  Transmission Date: 20210113
  Serious: Yes (Other)
  Sender: FDA-Public Use
  Company Number: US-009507513-2009USA010161

PATIENT
  Age: 16 Year
  Sex: Female
  Weight: 65.31 kg

DRUGS (3)
  1. NEXPLANON [Suspect]
     Active Substance: ETONOGESTREL
     Indication: DYSMENORRHOEA
     Dosage: 1 IMPLANT, IN LEFT UPPER ARM
     Route: 059
     Dates: start: 20190207
  2. NEXPLANON [Suspect]
     Active Substance: ETONOGESTREL
     Indication: ACNE
  3. ACCUTANE [Concomitant]
     Active Substance: ISOTRETINOIN
     Dosage: UNK

REACTIONS (5)
  - Complication of device removal [Not Recovered/Not Resolved]
  - Product use in unapproved indication [Unknown]
  - Device dislocation [Not Recovered/Not Resolved]
  - Complication associated with device [Recovered/Resolved]
  - Vaginal haemorrhage [Not Recovered/Not Resolved]

NARRATIVE: CASE EVENT DATE: 20190207
